FAERS Safety Report 13377152 (Version 1)
Quarter: 2017Q1

REPORT INFORMATION
  Report Type: Spontaneous
  Country: US (occurrence: US)
  Receive Date: 20170328
  Receipt Date: 20170328
  Transmission Date: 20170429
  Serious: No
  Sender: FDA-Public Use
  Company Number: US-SA-2017SA023118

PATIENT
  Sex: Female
  Weight: 55.79 kg

DRUGS (5)
  1. NAVELBINE [Concomitant]
     Active Substance: VINORELBINE TARTRATE
     Indication: BREAST CANCER METASTATIC
     Dates: start: 2016
  2. IBRANCE [Concomitant]
     Active Substance: PALBOCICLIB
     Route: 048
  3. ZOMETA [Concomitant]
     Active Substance: ZOLEDRONIC ACID
  4. LEUKINE [Suspect]
     Active Substance: SARGRAMOSTIM
     Indication: WHITE BLOOD CELL COUNT DECREASED
     Route: 065
     Dates: start: 2016
  5. FASLODEX [Concomitant]
     Active Substance: FULVESTRANT

REACTIONS (1)
  - Off label use [Unknown]

NARRATIVE: CASE EVENT DATE: 2016
